FAERS Safety Report 20650440 (Version 1)
Quarter: 2022Q1

REPORT INFORMATION
  Report Type: Spontaneous
  Country: DE (occurrence: DE)
  Receive Date: 20220329
  Receipt Date: 20220329
  Transmission Date: 20220423
  Serious: Yes (Other)
  Sender: FDA-Public Use
  Company Number: DE-EMBRYOTOX-202101905

PATIENT
  Age: 1 Day
  Sex: Female
  Weight: 2.285 kg

DRUGS (6)
  1. METOPROLOL [Suspect]
     Active Substance: METOPROLOL
     Indication: Hypertension
     Dosage: 95 MILLIGRAM, QD (95 [MG/D ])
     Route: 064
     Dates: start: 20201110, end: 20210811
  2. COMIRNATY [Concomitant]
     Active Substance: TOZINAMERAN
     Indication: COVID-19 immunisation
     Dosage: 1ST VACCINATION
     Route: 064
     Dates: start: 20210628, end: 20210628
  3. COMIRNATY [Concomitant]
     Active Substance: TOZINAMERAN
     Dosage: 2ND VACCINATION
     Route: 064
     Dates: start: 20210728, end: 20210728
  4. FOLIC ACID [Concomitant]
     Active Substance: FOLIC ACID
     Indication: Prophylaxis of neural tube defect
     Dosage: 5 MILLIGRAM, QD (5 [MG/D ])
     Route: 064
     Dates: start: 20201110, end: 20210811
  5. CYTOTEC [Concomitant]
     Active Substance: MISOPROSTOL
     Indication: Labour induction
     Dosage: UNK
     Route: 064
  6. ASPIRIN [Concomitant]
     Active Substance: ASPIRIN
     Indication: Prophylaxis
     Dosage: 150 MILLIGRAM, QD (150 [MG/D ]/ PRE-ECLAMPSIA PROPHYLAXIS)
     Route: 064

REACTIONS (2)
  - Small for dates baby [Recovered/Resolved]
  - Foetal exposure during pregnancy [Recovered/Resolved]

NARRATIVE: CASE EVENT DATE: 20210101
